FAERS Safety Report 6077831-8 (Version None)
Quarter: 2009Q1

REPORT INFORMATION
  Report Type: 
  Country: None (occurrence: None)
  Receive Date: 20090211
  Receipt Date: 20071219
  Transmission Date: 20090719
  Serious: Yes (Life-Threatening)
  Sender: FDA-Public Use
  Company Number: 2007AP001518

PATIENT
  Age: 74 Year
  Sex: Male

DRUGS (5)
  1. CILOSTAZOL TABLETS (CILOSTAZOL) [Suspect]
     Indication: INTERMITTENT CLAUDICATION
     Dosage: 100 MG; TAB; PO; BID
     Route: 048
     Dates: start: 20071210, end: 20071219
  2. ACETYLSALISYLIC ACID (ACETYLSALICYLIC ACID) [Concomitant]
  3. PERINDOPRIL ERBUMINE [Concomitant]
  4. EZETIMIBE [Concomitant]
  5. GLYBURIDE [Concomitant]

REACTIONS (3)
  - DYSPNOEA [None]
  - HEART RATE IRREGULAR [None]
  - TACHYCARDIA [None]
